FAERS Safety Report 15083407 (Version 2)
Quarter: 2018Q3

REPORT INFORMATION
  Report Type: Spontaneous
  Country: IR (occurrence: IR)
  Receive Date: 20180628
  Receipt Date: 20180911
  Transmission Date: 20181010
  Serious: Yes (Hospitalization, Other)
  Sender: FDA-Public Use
  Company Number: IR-MYLANLABS-2018M1046176

PATIENT
  Age: 32 Year
  Sex: Female

DRUGS (2)
  1. BETAMETHASONE. [Suspect]
     Active Substance: BETAMETHASONE
     Indication: PROPHYLAXIS
     Dosage: WEEKLY COURSES, STARTED FROM 26TH WEEK OF GESTATION
     Route: 065
  2. PREDNISOLONE. [Suspect]
     Active Substance: PREDNISOLONE
     Indication: PROPHYLAXIS
     Dosage: STARTED FROM 26TH WEEK OF GESTATION
     Route: 048

REACTIONS (3)
  - Maternal exposure during pregnancy [Recovering/Resolving]
  - Femoral neck fracture [Recovering/Resolving]
  - Osteoporosis [Recovering/Resolving]
